FAERS Safety Report 14712332 (Version 1)
Quarter: 2018Q2

REPORT INFORMATION
  Report Type: Spontaneous
  Country: US (occurrence: US)
  Receive Date: 20180404
  Receipt Date: 20180404
  Transmission Date: 20180711
  Serious: Yes (Other)
  Sender: FDA-Public Use
  Company Number: US-BEH-2018089275

PATIENT
  Age: 46 Year
  Sex: Female
  Weight: 68.27 kg

DRUGS (11)
  1. BERINERT [Suspect]
     Active Substance: HUMAN C1-ESTERASE INHIBITOR
     Indication: PROPHYLAXIS
     Dosage: UNK
     Route: 042
  2. CYMBALTA [Concomitant]
     Active Substance: DULOXETINE HYDROCHLORIDE
  3. HEPARIN [Concomitant]
     Active Substance: HEPARIN SODIUM
  4. RUCONEST [Concomitant]
     Active Substance: HUMAN C1-ESTERASE INHIBITOR
  5. BERINERT [Suspect]
     Active Substance: HUMAN C1-ESTERASE INHIBITOR
     Indication: HEREDITARY ANGIOEDEMA
     Dosage: 1000 IU, EVERY 3-4 DAYS
     Route: 042
     Dates: start: 20150204
  6. CLONAZEPAM. [Concomitant]
     Active Substance: CLONAZEPAM
  7. EPIPEN [Concomitant]
     Active Substance: EPINEPHRINE
  8. CINRYZE [Concomitant]
     Active Substance: HUMAN C1-ESTERASE INHIBITOR
  9. STERILE WATER [Concomitant]
     Active Substance: WATER
  10. SODIUM CHLORIDE. [Concomitant]
     Active Substance: SODIUM CHLORIDE
  11. ROPINIROLE. [Concomitant]
     Active Substance: ROPINIROLE

REACTIONS (2)
  - Ovarian cyst ruptured [Unknown]
  - Ovarian cyst [Unknown]

NARRATIVE: CASE EVENT DATE: 201802
